FAERS Safety Report 10619234 (Version 3)
Quarter: 2014Q4

REPORT INFORMATION
  Report Type: Report from Study
  Country: US (occurrence: US)
  Receive Date: 20141202
  Receipt Date: 20141208
  Transmission Date: 20150529
  Serious: Yes (Hospitalization)
  Sender: FDA-Public Use
  Company Number: US-MYLANLABS-2014SP004233

PATIENT

DRUGS (17)
  1. OXALIPLATIN. [Suspect]
     Active Substance: OXALIPLATIN
     Dosage: 65 MG, BIWEEKLY
     Route: 042
     Dates: start: 20140805
  2. FOLINIC ACID [Suspect]
     Active Substance: LEUCOVORIN
     Indication: COLORECTAL CANCER METASTATIC
     Route: 042
     Dates: start: 20140624
  3. FAMOTIDINE. [Concomitant]
     Active Substance: FAMOTIDINE
     Dates: start: 20140630
  4. IRINOTECAN [Suspect]
     Active Substance: IRINOTECAN
     Dosage: 120 MG, BIWEEKLY
     Route: 042
     Dates: start: 20140805
  5. BEVACIZUMAB [Suspect]
     Active Substance: BEVACIZUMAB
     Indication: COLORECTAL CANCER METASTATIC
     Dosage: 323 MG, BIWEEKLY
     Route: 042
     Dates: start: 20140623, end: 20140805
  6. NALOXONE [Concomitant]
     Active Substance: NALOXONE
  7. HEPARIN [Concomitant]
     Active Substance: HEPARIN SODIUM
     Dates: start: 20140701
  8. IRINOTECAN [Suspect]
     Active Substance: IRINOTECAN
     Indication: COLORECTAL CANCER METASTATIC
     Dosage: 165 MG, BIWEEKLY
     Route: 042
     Dates: start: 20140624, end: 2014
  9. MORPHINE                           /00036303/ [Concomitant]
  10. CALCIUM FOLINATE [Suspect]
     Active Substance: LEUCOVORIN CALCIUM
     Indication: COLORECTAL CANCER METASTATIC
     Dosage: 200 MG, BIWEEKLY
     Route: 042
     Dates: start: 20140624
  11. OXALIPLATIN. [Suspect]
     Active Substance: OXALIPLATIN
     Indication: COLORECTAL CANCER METASTATIC
     Dosage: 85 MG, BIWEEKLY
     Route: 042
     Dates: start: 20140624, end: 2014
  12. FLUOROURACIL. [Suspect]
     Active Substance: FLUOROURACIL
     Indication: COLORECTAL CANCER METASTATIC
     Dosage: 3200 MG, BIWEEKLY
     Route: 042
     Dates: start: 20140624, end: 2014
  13. FLUOROURACIL. [Suspect]
     Active Substance: FLUOROURACIL
     Dosage: 2400 MG, BIWEEKLY
     Route: 042
     Dates: start: 20140805
  14. CEFTRIAXONE SODIUM. [Concomitant]
     Active Substance: CEFTRIAXONE SODIUM
     Dates: start: 20140703
  15. MAGNESIUM SULPHATE                 /01097001/ [Concomitant]
     Active Substance: MAGNESIUM SULFATE
     Dates: start: 20140703
  16. METRONIDAZOLE. [Concomitant]
     Active Substance: METRONIDAZOLE
     Dates: start: 20140703
  17. HEPARIN [Concomitant]
     Active Substance: HEPARIN SODIUM
     Dates: start: 20140630

REACTIONS (3)
  - Large intestine perforation [Recovered/Resolved]
  - Abdominal pain [Unknown]
  - Pneumoperitoneum [Unknown]

NARRATIVE: CASE EVENT DATE: 20140628
